FAERS Safety Report 10243563 (Version 1)
Quarter: 2014Q2

REPORT INFORMATION
  Report Type: Spontaneous
  Country: US (occurrence: None)
  Receive Date: 20140616
  Receipt Date: 20140616
  Transmission Date: 20141212
  Serious: No
  Sender: FDA-Public Use
  Company Number: None

PATIENT
  Age: 65 Year
  Sex: Female

DRUGS (1)
  1. SYMBICORT [Suspect]
     Indication: EMPHYSEMA
     Route: 048
     Dates: start: 20140201, end: 20140225

REACTIONS (4)
  - Pneumonia [None]
  - Pleurisy [None]
  - Epistaxis [None]
  - Malaise [None]
